FAERS Safety Report 6020230-5 (Version None)
Quarter: 2008Q4

REPORT INFORMATION
  Report Type: 
  Country: None (occurrence: None)
  Receive Date: 20081226
  Receipt Date: 20081215
  Transmission Date: 20090506
  Serious: Yes (Hospitalization, Other)
  Sender: FDA-Public Use
  Company Number: PHHY2008FR32209

PATIENT
  Sex: Female

DRUGS (10)
  1. ZOMETA [Suspect]
     Indication: METASTASES TO BONE
     Dosage: 4 MG, QMO
     Route: 042
     Dates: start: 20080101, end: 20080928
  2. CAPECITABINE [Suspect]
     Indication: BREAST NEOPLASM
     Dosage: 2 DF, QD
     Dates: start: 20070401, end: 20081030
  3. LASILIX [Suspect]
     Indication: HYPERTENSION
     Dosage: 60 MG, QD
     Route: 048
     Dates: start: 20080901
  4. AMLOR [Suspect]
     Indication: HYPERTENSION
     Dosage: 10 MG, QD
     Route: 048
     Dates: start: 20081001
  5. TANAKAN [Concomitant]
     Indication: SENSORY LOSS
     Dosage: 40 MG, BID
     Route: 048
     Dates: start: 19980101
  6. LIPANTHYL [Concomitant]
     Indication: DYSLIPIDAEMIA
     Dosage: 160 MG/DAY
     Route: 048
     Dates: start: 19980101, end: 20081030
  7. DOLIPRANE [Concomitant]
     Indication: PAIN
     Dosage: 1000 MG, TID
     Route: 048
     Dates: start: 19980101, end: 20081030
  8. DOMPERIDONE [Concomitant]
     Dosage: 10 MG, TID
     Route: 048
     Dates: start: 19980101, end: 20081030
  9. MOPRAL [Concomitant]
     Dosage: 1 DF, QD
     Route: 048
  10. NOCTRAN [Concomitant]
     Dosage: 5 MG, QD

REACTIONS (11)
  - BUNDLE BRANCH BLOCK RIGHT [None]
  - CREATININE RENAL CLEARANCE DECREASED [None]
  - CREPITATIONS [None]
  - DEEP VEIN THROMBOSIS [None]
  - FEELING HOT [None]
  - HOMANS' SIGN [None]
  - HYPERTENSION [None]
  - OEDEMA PERIPHERAL [None]
  - PAIN IN EXTREMITY [None]
  - RENAL FAILURE [None]
  - SKIN ULCER [None]
